FAERS Safety Report 23866340 (Version 1)
Quarter: 2024Q2

REPORT INFORMATION
  Report Type: Other
  Country: FR (occurrence: None)
  Receive Date: 20240517
  Receipt Date: 20240517
  Transmission Date: 20240716
  Serious: Yes (Other)
  Sender: FDA-Public Use
  Company Number: FR-ROCHE-3559550

PATIENT

DRUGS (7)
  1. ATEZOLIZUMAB [Suspect]
     Active Substance: ATEZOLIZUMAB
     Indication: Metastatic neoplasm
     Route: 065
  2. ATEZOLIZUMAB [Suspect]
     Active Substance: ATEZOLIZUMAB
     Route: 065
  3. NIVOLUMAB [Suspect]
     Active Substance: NIVOLUMAB
     Indication: Metastatic neoplasm
     Route: 042
  4. PEMBROLIZUMAB [Suspect]
     Active Substance: PEMBROLIZUMAB
     Indication: Metastatic neoplasm
     Route: 042
  5. DURVALUMAB [Suspect]
     Active Substance: DURVALUMAB
     Indication: Metastatic neoplasm
     Route: 042
  6. DURVALUMAB [Suspect]
     Active Substance: DURVALUMAB
     Dosage: 10 MG/KG OF BODY WEIGHT Q2WEEK
     Route: 042
  7. IPILIMUMAB [Suspect]
     Active Substance: IPILIMUMAB
     Indication: Metastatic neoplasm
     Route: 042

REACTIONS (16)
  - Cardiac disorder [Unknown]
  - Skin disorder [Unknown]
  - Diabetes mellitus [Unknown]
  - Gastrointestinal disorder [Unknown]
  - Endocrine disorder [Unknown]
  - Liver disorder [Unknown]
  - Hypothalamo-pituitary disorder [Unknown]
  - Renal disorder [Unknown]
  - Nervous system disorder [Unknown]
  - Eye disorder [Unknown]
  - Pancreatic disorder [Unknown]
  - Lung disorder [Unknown]
  - Renal disorder [Unknown]
  - Rheumatic disorder [Unknown]
  - Thyroid disorder [Unknown]
  - Drug intolerance [Unknown]
